FAERS Safety Report 17971175 (Version 2)
Quarter: 2020Q3

REPORT INFORMATION
  Report Type: Spontaneous
  Country: GB (occurrence: GB)
  Receive Date: 20200701
  Receipt Date: 20200807
  Transmission Date: 20201103
  Serious: Yes (Hospitalization, Other)
  Sender: FDA-Public Use
  Company Number: GB-NOVOPROD-736581

PATIENT
  Age: 63 Year
  Sex: Female
  Weight: 68.5 kg

DRUGS (23)
  1. LANSOPRAZOLE. [Concomitant]
     Active Substance: LANSOPRAZOLE
     Dosage: 30 MG, QD, IN THE MORNING
     Route: 065
  2. LEVEMIR [Concomitant]
     Active Substance: INSULIN DETEMIR
     Indication: TYPE 1 DIABETES MELLITUS
     Dosage: UNK
     Route: 058
  3. CHLORPROMAZINE. [Concomitant]
     Active Substance: CHLORPROMAZINE
     Dosage: 25 MG, QD
     Route: 065
  4. INDAPAMIDE. [Concomitant]
     Active Substance: INDAPAMIDE
     Dosage: 2.5 MG, QD, IN THE MORNING
     Route: 065
  5. AMLODIPINE [Concomitant]
     Active Substance: AMLODIPINE BESYLATE
     Dosage: 10 MG, QD
     Route: 065
  6. DULOXETINE. [Concomitant]
     Active Substance: DULOXETINE
     Dosage: 30 MG, BID, 30MG GASTRO?RESISTANT CAPSULES (WHEN OUT OF STOCK ? TAKE 2)
     Route: 065
  7. NOVORAPID [Suspect]
     Active Substance: INSULIN ASPART
     Dosage: 160 IU, QD
     Route: 058
  8. ATORVASTATIN [Concomitant]
     Active Substance: ATORVASTATIN
     Dosage: 20 MG, QD
     Route: 065
  9. SALBUTAMOL [Concomitant]
     Active Substance: ALBUTEROL
     Dosage: ONE OR TWO PUFFS TO BE INHALED FOUR TIMES A DAY WHEN REQUIRED
     Route: 055
  10. NOVORAPID [Suspect]
     Active Substance: INSULIN ASPART
     Dosage: 100 IU, QD, CHANGED THE CARTRIDGE
     Route: 058
  11. SOLIFENACIN [Concomitant]
     Active Substance: SOLIFENACIN
     Dosage: 5 MG, QD
     Route: 065
  12. MACROGOL + ELECTROLYTES SANDOZ [Concomitant]
     Dosage: UNK
     Route: 065
  13. FOSTAIR [Concomitant]
     Active Substance: BECLOMETHASONE\FORMOTEROL
     Dosage: 2 DF, BID
     Route: 055
  14. CODEINE [Concomitant]
     Active Substance: CODEINE
     Dosage: 30 MG, QD
     Route: 065
  15. SENNA [Concomitant]
     Active Substance: SENNA LEAF\SENNOSIDES\SENNOSIDES A AND B
     Dosage: 15 MG, QD, AT NIGHT
     Route: 065
  16. GLANDOSANE [CALCIUM CHLORIDE DIHYDRATE;CARMELLOSE SODIUM;MAGNESIUM CHL [Concomitant]
     Dosage: TO BE USED WHEN REQUIRED
     Route: 065
  17. NOVORAPID [Concomitant]
     Active Substance: INSULIN ASPART
     Indication: TYPE 1 DIABETES MELLITUS
     Dosage: AS DIRECTED IN CASE OF PUMP FAILURE
     Route: 058
  18. NOVORAPID [Suspect]
     Active Substance: INSULIN ASPART
     Indication: TYPE 1 DIABETES MELLITUS
     Dosage: 100 IU, QD
     Route: 058
  19. AMITRIPTYLINE [Concomitant]
     Active Substance: AMITRIPTYLINE
     Dosage: 25 MG, QD, 1 NIHGT, 1 MORNING
     Route: 065
  20. BISOPROLOL [Concomitant]
     Active Substance: BISOPROLOL
     Dosage: 5 MG, QD
     Route: 065
  21. ASPIRIN [ACETYLSALICYLIC ACID] [Concomitant]
     Active Substance: ASPIRIN
     Dosage: 75 MG, QD
     Route: 065
  22. PARACETAMOL [Concomitant]
     Active Substance: ACETAMINOPHEN
     Dosage: 1000 MG, QD
     Route: 065
  23. DIAZEPAN [Concomitant]
     Active Substance: DIAZEPAM
     Dosage: 2 MG, BID
     Route: 065

REACTIONS (7)
  - Dysphagia [Unknown]
  - Hyperglycaemia [Not Recovered/Not Resolved]
  - Hyperglycaemia [Recovered/Resolved]
  - Blood ketone body present [Recovered/Resolved]
  - Blood glucose increased [Unknown]
  - Constipation [Unknown]
  - Abdominal pain [Unknown]

NARRATIVE: CASE EVENT DATE: 202003
